FAERS Safety Report 5021746-0 (Version None)
Quarter: 2006Q2

REPORT INFORMATION
  Report Type: 
  Country: None (occurrence: None)
  Receive Date: 20060605
  Receipt Date: 20060522
  Transmission Date: 20061013
  Serious: Yes (Hospitalization)
  Sender: FDA-Public Use
  Company Number: 224679

PATIENT
  Age: 67 Year
  Sex: Male
  Weight: 113.4 kg

DRUGS (11)
  1. BEVACIZUMAB (VAVACIZUMAB) PWDR + SOLVENT, INFUSION SOLN, 100MG [Suspect]
     Indication: INSULINOMA
     Dosage: 570 MG, Q2W, INTRAVENOUS
     Route: 042
     Dates: start: 20060411, end: 20060425
  2. DEXAMETHASONE [Suspect]
     Dosage: 20 MG, Q2W, INTRAVENOUS
     Route: 042
     Dates: start: 20060411, end: 20060425
  3. LORAZEPAM [Suspect]
     Dosage: 1 MG, Q2W, ORAL
     Route: 048
     Dates: start: 20060411, end: 20060425
  4. GRANISETRON(GRANISETRON HYDROCHLORIDE) [Suspect]
     Indication: INSULINOMA
     Dosage: 1200 AUG,, Q2W, INTRAVENOUS
     Route: 042
     Dates: start: 20060411, end: 20060425
  5. OXALIPLATIN(OXALIPLATIN) [Suspect]
     Indication: INSULINOMA
     Dosage: 200 MG, Q2W, INTRAVENOUS
     Route: 042
     Dates: start: 20060411, end: 20060425
  6. FLUOROURACIL [Suspect]
     Indication: INSULINOMA
     Dosage: 950 MG/M2, Q2W, INTRAVENOUS; 2850 MG, Q2W, INTRAVENOUS
     Route: 042
     Dates: start: 20060411, end: 20060425
  7. LEUCOVORIN CALCIUM [Suspect]
     Indication: INSULINOMA
     Dosage: 475 MG, Q2W, INTRAVENOUS
     Route: 042
     Dates: start: 20060411, end: 20060425
  8. PROTONIX [Concomitant]
  9. SANDOSTATIN [Concomitant]
  10. DEXTROSE 10% (DEXTROSE) [Concomitant]
  11. ASPIRIN [Concomitant]

REACTIONS (6)
  - ASPARTATE AMINOTRANSFERASE INCREASED [None]
  - CHILLS [None]
  - DEHYDRATION [None]
  - DIARRHOEA [None]
  - FATIGUE [None]
  - VOMITING [None]
